FAERS Safety Report 5261423-4 (Version None)
Quarter: 2007Q1

REPORT INFORMATION
  Report Type: 
  Country: None (occurrence: None)
  Receive Date: 20070307
  Receipt Date: 20070220
  Transmission Date: 20070707
  Serious: Yes (Hospitalization, Other)
  Sender: FDA-Public Use
  Company Number: 2006BI001039

PATIENT
  Sex: Female

DRUGS (4)
  1. ZEVALIN [Suspect]
     Indication: NON-HODGKIN'S LYMPHOMA
     Dosage: ; 1X; IV
     Route: 042
     Dates: start: 20020307, end: 20020307
  2. ZEVALIN [Suspect]
     Indication: NON-HODGKIN'S LYMPHOMA
     Dosage: 0.4 MCI/KG; 1X; IV
     Route: 042
     Dates: start: 20020314, end: 20020314
  3. RITUXIMAB [Concomitant]
  4. RITUXIMAB [Concomitant]

REACTIONS (5)
  - BLOOD BLISTER [None]
  - BONE MARROW FAILURE [None]
  - DRUG TOXICITY [None]
  - EPISTAXIS [None]
  - TREATMENT NONCOMPLIANCE [None]
